FAERS Safety Report 6474253-2 (Version None)
Quarter: 2009Q4

REPORT INFORMATION
  Report Type: 
  Country: None (occurrence: None)
  Receive Date: 20091204
  Receipt Date: 20091125
  Transmission Date: 20100525
  Serious: Yes (Other)
  Sender: FDA-Public Use
  Company Number: PHHY2009DE52578

PATIENT
  Sex: Male

DRUGS (7)
  1. RASILEZ [Suspect]
     Indication: HYPERTENSION
     Dosage: UNK
     Dates: start: 20091122, end: 20091124
  2. ENALAPRIL/HCT [Concomitant]
     Indication: HYPERTENSION
     Dosage: 1 DF, QD
  3. ENALAPRIL [Concomitant]
     Indication: HYPERTENSION
     Dosage: 1 DF, QD
  4. FELODIPINE [Concomitant]
     Indication: HYPERTENSION
     Dosage: 1 DF, BID
  5. CARVEDILOL [Concomitant]
     Indication: HYPERTENSION
     Dosage: 1 DF, BID
  6. PHYSIOTENS [Concomitant]
     Indication: HYPERTENSION
     Dosage: 1 DF, BID
  7. SPIRONOLACTONE [Concomitant]
     Indication: HYPERTENSION
     Dosage: UNK
     Dates: start: 20090901, end: 20091101

REACTIONS (1)
  - BLOOD PRESSURE INCREASED [None]
